FAERS Safety Report 11075335 (Version 1)
Quarter: 2015Q2

REPORT INFORMATION
  Report Type: Spontaneous
  Country: DE (occurrence: DE)
  Receive Date: 20150429
  Receipt Date: 20150429
  Transmission Date: 20150821
  Serious: Yes (Other)
  Sender: FDA-Public Use
  Company Number: GXKR2015DE002151

PATIENT
  Age: 34 Year
  Sex: Male

DRUGS (1)
  1. CLINDAMYCIN [Suspect]
     Active Substance: CLINDAMYCIN\CLINDAMYCIN PHOSPHATE
     Indication: DENTAL DISORDER PROPHYLAXIS
     Dosage: UKN
     Route: 065

REACTIONS (4)
  - Oesophagitis ulcerative [Recovering/Resolving]
  - Odynophagia [Recovering/Resolving]
  - Dyspepsia [Recovering/Resolving]
  - Weight decreased [Unknown]
